FAERS Safety Report 23387803 (Version 1)
Quarter: 2024Q1

REPORT INFORMATION
  Report Type: Report from Study
  Country: CZ (occurrence: CZ)
  Receive Date: 20240110
  Receipt Date: 20240110
  Transmission Date: 20240410
  Serious: Yes (Hospitalization)
  Sender: FDA-Public Use
  Company Number: CZ-002147023-NVSC2019CZ073159

PATIENT
  Age: 10 Year
  Sex: Male
  Weight: 33.9 kg

DRUGS (26)
  1. CYTARABINE [Suspect]
     Active Substance: CYTARABINE
     Indication: Acute myeloid leukaemia
     Dosage: 2380 MG, QD
     Route: 042
     Dates: start: 20191105
  2. FLUDARABINE [Suspect]
     Active Substance: FLUDARABINE PHOSPHATE
     Indication: Acute myeloid leukaemia
     Dosage: 35 MG, QD
     Route: 042
     Dates: start: 20191105
  3. IDARUBICIN [Suspect]
     Active Substance: IDARUBICIN
     Indication: Acute myeloid leukaemia
     Dosage: 14 MG, QD
     Route: 042
     Dates: start: 20191105
  4. AMIKACIN [Concomitant]
     Active Substance: AMIKACIN
     Indication: Febrile neutropenia
     Dosage: UNK
     Route: 065
     Dates: start: 20191024, end: 20191028
  5. AMIKACIN [Concomitant]
     Active Substance: AMIKACIN
     Dosage: UNK
     Route: 065
     Dates: start: 20191111, end: 20191120
  6. BISULEPIN [Concomitant]
     Active Substance: BISULEPIN
     Indication: Rash maculo-papular
     Dosage: UNK
     Route: 065
     Dates: start: 20191023, end: 20191027
  7. CEFEPIME [Concomitant]
     Active Substance: CEFEPIME HYDROCHLORIDE
     Indication: Pyrexia
     Dosage: UNK
     Route: 065
     Dates: start: 20191105, end: 20191120
  8. COTRIMOXAZOLE [Concomitant]
     Active Substance: SULFAMETHOXAZOLE\TRIMETHOPRIM
     Indication: Antifungal prophylaxis
     Dosage: UNK
     Route: 065
     Dates: start: 20191026, end: 20191027
  9. COTRIMOXAZOLE [Concomitant]
     Active Substance: SULFAMETHOXAZOLE\TRIMETHOPRIM
     Dosage: UNK
     Route: 065
     Dates: start: 20191102, end: 20191103
  10. COTRIMOXAZOLE [Concomitant]
     Active Substance: SULFAMETHOXAZOLE\TRIMETHOPRIM
     Dosage: UNK
     Route: 065
     Dates: start: 20191111, end: 20191112
  11. FUROSEMIDE [Concomitant]
     Active Substance: FUROSEMIDE
     Indication: Diuretic therapy
     Dosage: UNK
     Route: 065
     Dates: start: 20191105, end: 20191107
  12. FUROSEMIDE [Concomitant]
     Active Substance: FUROSEMIDE
     Indication: Fluid retention
     Dosage: UNK
     Route: 065
     Dates: start: 20191026, end: 20191026
  13. METAMIZOLE [Concomitant]
     Active Substance: METAMIZOLE
     Indication: Febrile neutropenia
     Dosage: UNK
     Route: 065
     Dates: start: 20191024, end: 20191024
  14. METAMIZOLE [Concomitant]
     Active Substance: METAMIZOLE
     Indication: Pyrexia
     Dosage: UNK
     Route: 065
     Dates: start: 20191029, end: 20191031
  15. METAMIZOLE [Concomitant]
     Active Substance: METAMIZOLE
     Dosage: UNK
     Route: 065
     Dates: start: 20191105, end: 20191110
  16. MIDAZOLAM [Concomitant]
     Active Substance: MIDAZOLAM
     Indication: Acute myeloid leukaemia
     Dosage: UNK
     Route: 065
     Dates: start: 20191031, end: 20191031
  17. MIDAZOLAM [Concomitant]
     Active Substance: MIDAZOLAM
     Dosage: UNK
     Route: 065
     Dates: start: 20191105, end: 20191105
  18. NALBUPHINE [Concomitant]
     Active Substance: NALBUPHINE
     Indication: Acute myeloid leukaemia
     Dosage: UNK
     Route: 065
     Dates: start: 20191031, end: 20191031
  19. OMEPRAZOLE [Concomitant]
     Active Substance: OMEPRAZOLE
     Indication: Mucosal inflammation
     Dosage: UNK
     Route: 065
     Dates: start: 20191110, end: 20191111
  20. OMEPRAZOLE [Concomitant]
     Active Substance: OMEPRAZOLE
     Indication: Oesophagitis
     Dosage: UNK
     Route: 065
  21. ACETAMINOPHEN [Concomitant]
     Active Substance: ACETAMINOPHEN
     Indication: Febrile neutropenia
     Dosage: UNK
     Route: 065
     Dates: start: 20191106, end: 20191106
  22. ACETAMINOPHEN [Concomitant]
     Active Substance: ACETAMINOPHEN
     Indication: Pyrexia
     Dosage: UNK
     Route: 065
     Dates: start: 20191112, end: 20191114
  23. POSACONAZOLE [Concomitant]
     Active Substance: POSACONAZOLE
     Indication: Prophylaxis
     Dosage: UNK
     Route: 065
     Dates: start: 20191110, end: 20191219
  24. PROPOFOL [Concomitant]
     Active Substance: PROPOFOL
     Indication: Acute myeloid leukaemia
     Dosage: UNK
     Route: 065
     Dates: start: 20191101, end: 20191101
  25. SUFENTANIL [Concomitant]
     Active Substance: SUFENTANIL
     Indication: Acute myeloid leukaemia
     Dosage: UNK
     Route: 065
     Dates: start: 20191101, end: 20191101
  26. TEICOPLANIN [Concomitant]
     Active Substance: TEICOPLANIN
     Indication: Febrile neutropenia
     Dosage: UNK
     Route: 065
     Dates: start: 20191113, end: 20191127

REACTIONS (1)
  - Thrombocytopenia [Recovering/Resolving]

NARRATIVE: CASE EVENT DATE: 20191113
